FAERS Safety Report 7378572-7 (Version None)
Quarter: 2011Q1

REPORT INFORMATION
  Report Type: 
  Country: None (occurrence: None)
  Receive Date: 20110317
  Receipt Date: 20110310
  Transmission Date: 20110831
  Serious: Yes (Other)
  Sender: FDA-Public Use
  Company Number: 009133

PATIENT
  Sex: Male
  Weight: 83 kg

DRUGS (3)
  1. CALCIMAX D3 [Concomitant]
  2. CERTOLIZUMAB PEGOL (CERTOLIZUMAB PEGOL) [Suspect]
     Indication: RHEUMATOID ARTHRITIS
     Dosage: 200 MG 1X/2 WEEKS, SUBCUTANEOUS
     Route: 058
     Dates: start: 20090501
  3. IBUPROFEN [Concomitant]

REACTIONS (1)
  - LYMPHOMA [None]
